FAERS Safety Report 18972290 (Version 1)
Quarter: 2021Q1

REPORT INFORMATION
  Report Type: Spontaneous
  Country: JP (occurrence: JP)
  Receive Date: 20210305
  Receipt Date: 20210305
  Transmission Date: 20210420
  Serious: Yes (Other)
  Sender: FDA-Public Use
  Company Number: JP-ROCHE-2784132

PATIENT

DRUGS (11)
  1. LUCENTIS [Suspect]
     Active Substance: RANIBIZUMAB
     Dosage: UNK,2ND SET
     Route: 065
     Dates: start: 201208, end: 201208
  2. LUCENTIS [Suspect]
     Active Substance: RANIBIZUMAB
     Dosage: UNK
     Route: 065
     Dates: start: 201308, end: 201308
  3. LUCENTIS [Suspect]
     Active Substance: RANIBIZUMAB
     Dosage: UNK,5 SETS
     Route: 065
     Dates: start: 2014, end: 2014
  4. LUCENTIS [Suspect]
     Active Substance: RANIBIZUMAB
     Dosage: UNK, 6 SETS
     Route: 065
     Dates: start: 2015, end: 2015
  5. LUCENTIS [Suspect]
     Active Substance: RANIBIZUMAB
     Indication: NEOVASCULAR AGE-RELATED MACULAR DEGENERATION
     Dosage: UNK,1ST SET
     Route: 065
     Dates: start: 201207, end: 201207
  6. LUCENTIS [Suspect]
     Active Substance: RANIBIZUMAB
     Dosage: UNK, 3RD SET
     Route: 065
     Dates: start: 201209, end: 201209
  7. LUCENTIS [Suspect]
     Active Substance: RANIBIZUMAB
     Dosage: UNK, 1 SET
     Route: 065
     Dates: start: 2016, end: 2016
  8. LUCENTIS [Suspect]
     Active Substance: RANIBIZUMAB
     Dosage: UNK, 2 SETS
     Route: 065
     Dates: start: 2017, end: 2017
  9. LUCENTIS [Suspect]
     Active Substance: RANIBIZUMAB
     Dosage: UNK
     Route: 065
     Dates: start: 201309, end: 201309
  10. LUCENTIS [Suspect]
     Active Substance: RANIBIZUMAB
     Dosage: UNK
     Route: 065
     Dates: start: 201310, end: 201310
  11. LUCENTIS [Suspect]
     Active Substance: RANIBIZUMAB
     Dosage: UNK, 1 SET
     Route: 065
     Dates: start: 201804, end: 201804

REACTIONS (5)
  - Disease progression [Unknown]
  - Neovascular age-related macular degeneration [Unknown]
  - Visual acuity reduced [Unknown]
  - Metamorphopsia [Unknown]
  - Vision blurred [Unknown]

NARRATIVE: CASE EVENT DATE: 201305
